FAERS Safety Report 11230047 (Version 2)
Quarter: 2015Q3

REPORT INFORMATION
  Report Type: Report from Study
  Country: CA (occurrence: CA)
  Receive Date: 20150701
  Receipt Date: 20150703
  Transmission Date: 20151125
  Serious: Yes (Hospitalization)
  Sender: FDA-Public Use
  Company Number: CA-ROCHE-1592869

PATIENT
  Age: 28 Year
  Sex: Female

DRUGS (7)
  1. IMURAN [Concomitant]
     Active Substance: AZATHIOPRINE
  2. ACETAMINOPHEN. [Concomitant]
     Active Substance: ACETAMINOPHEN
     Indication: PREMEDICATION
     Route: 048
     Dates: start: 20141001
  3. PREDNISONE. [Concomitant]
     Active Substance: PREDNISONE
  4. RITUXAN [Suspect]
     Active Substance: RITUXIMAB
     Indication: SUSAC^S SYNDROME
     Dosage: FREQUENCY: DAY 1, 15
     Route: 042
     Dates: start: 20141001
  5. METHYLPREDNISOLONE. [Concomitant]
     Active Substance: METHYLPREDNISOLONE
     Indication: PREMEDICATION
     Route: 042
     Dates: start: 20141001
  6. DIPHENHYDRAMINE HCL [Concomitant]
     Active Substance: DIPHENHYDRAMINE HYDROCHLORIDE
     Indication: PREMEDICATION
     Route: 048
     Dates: start: 20141001
  7. PREVACID [Concomitant]
     Active Substance: LANSOPRAZOLE

REACTIONS (17)
  - Blood potassium decreased [Unknown]
  - Hypotension [Unknown]
  - Nasopharyngitis [Unknown]
  - Hepatic enzyme increased [Unknown]
  - Infection [Unknown]
  - White blood cell count decreased [Unknown]
  - Pyrexia [Unknown]
  - Blood iron decreased [Not Recovered/Not Resolved]
  - Platelet count decreased [Unknown]
  - Thrombosis [Unknown]
  - Influenza like illness [Unknown]
  - White blood cell count increased [Not Recovered/Not Resolved]
  - Vomiting [Unknown]
  - Paraesthesia [Unknown]
  - Headache [Unknown]
  - Pain [Not Recovered/Not Resolved]
  - Dizziness [Unknown]

NARRATIVE: CASE EVENT DATE: 201410
